FAERS Safety Report 19309140 (Version 1)
Quarter: 2021Q2

REPORT INFORMATION
  Report Type: Spontaneous
  Country: US (occurrence: US)
  Receive Date: 20210525
  Receipt Date: 20210525
  Transmission Date: 20210717
  Serious: Yes (Other)
  Sender: FDA-Public Use
  Company Number: US-GLAXOSMITHKLINE-US2021GSK108132

PATIENT
  Sex: Female

DRUGS (12)
  1. RANITIDINE. [Suspect]
     Active Substance: RANITIDINE
     Indication: HERNIA
  2. RANITIDINE. [Suspect]
     Active Substance: RANITIDINE
     Indication: HERNIA
  3. ZANTAC [Suspect]
     Active Substance: RANITIDINE HYDROCHLORIDE
     Indication: HERNIA
  4. ZANTAC [Suspect]
     Active Substance: RANITIDINE HYDROCHLORIDE
     Indication: CROHN^S DISEASE
  5. RANITIDINE. [Suspect]
     Active Substance: RANITIDINE
     Indication: CROHN^S DISEASE
     Dosage: UNK, QD
     Route: 065
     Dates: start: 199011, end: 200411
  6. ZANTAC [Suspect]
     Active Substance: RANITIDINE HYDROCHLORIDE
     Indication: HERNIA
     Dosage: UNK UNK, QD
     Route: 065
     Dates: start: 199011, end: 200411
  7. RANITIDINE CAPSULE [Suspect]
     Active Substance: RANITIDINE
     Indication: HERNIA
  8. RANITIDINE. [Suspect]
     Active Substance: RANITIDINE
     Indication: CROHN^S DISEASE
     Dosage: UNK, QD
     Route: 065
     Dates: start: 199011, end: 200411
  9. ZANTAC [Suspect]
     Active Substance: RANITIDINE HYDROCHLORIDE
     Indication: CROHN^S DISEASE
     Dosage: UNK UNK, QD
     Route: 065
     Dates: start: 199011, end: 200411
  10. RANITIDINE CAPSULE [Suspect]
     Active Substance: RANITIDINE
     Indication: CROHN^S DISEASE
     Dosage: UNK UNK, QD
     Route: 065
     Dates: start: 199011, end: 200411
  11. RANITIDINE. [Suspect]
     Active Substance: RANITIDINE
     Indication: CROHN^S DISEASE
     Dosage: UNK UNK, QD
     Route: 065
     Dates: start: 199011, end: 200411
  12. RANITIDINE. [Suspect]
     Active Substance: RANITIDINE
     Indication: HERNIA

REACTIONS (1)
  - Pancreatic carcinoma [Unknown]
